FAERS Safety Report 5099960-8 (Version None)
Quarter: 2006Q3

REPORT INFORMATION
  Report Type: 
  Country: None (occurrence: None)
  Receive Date: 20060908
  Receipt Date: 20060524
  Transmission Date: 20061208
  Serious: Yes (Other)
  Sender: FDA-Public Use
  Company Number: US-AMGEN-US180716

PATIENT
  Age: 16 Year
  Sex: Male

DRUGS (1)
  1. ARANESP [Suspect]
     Indication: RENAL FAILURE CHRONIC

REACTIONS (4)
  - ANAEMIA [None]
  - APLASIA [None]
  - BONE MARROW FAILURE [None]
  - DRUG EFFECT DECREASED [None]
